FAERS Safety Report 5409301-1 (Version None)
Quarter: 2007Q3

REPORT INFORMATION
  Report Type: 
  Country: None (occurrence: None)
  Receive Date: 20070807
  Receipt Date: 20070807
  Transmission Date: 20080115
  Serious: Yes (Hospitalization)
  Sender: FDA-Public Use
  Company Number: None

PATIENT
  Age: 30 Year
  Sex: Female
  Weight: 131.2 kg

DRUGS (2)
  1. PHENTERMINE [Suspect]
     Indication: WEIGHT CONTROL
     Dosage: 37.5 MG QD PO
     Route: 048
     Dates: start: 20070715, end: 20070804
  2. ZOLOFT [Suspect]
     Indication: WEIGHT CONTROL
     Dosage: 50 MG QD PO
     Route: 048
     Dates: start: 20070715, end: 20070804

REACTIONS (1)
  - SEROTONIN SYNDROME [None]
